FAERS Safety Report 9722946 (Version 1)
Quarter: 2013Q4

REPORT INFORMATION
  Report Type: Spontaneous
  Country: US (occurrence: None)
  Receive Date: 20131126
  Receipt Date: 20131126
  Transmission Date: 20140711
  Serious: No
  Sender: FDA-Public Use
  Company Number: B0947208A

PATIENT
  Sex: Male

DRUGS (4)
  1. LAMIVUDINE-HBV [Suspect]
     Indication: PRODUCT USED FOR UNKNOWN INDICATION
  2. ACYCLOVIR [Suspect]
     Indication: PRODUCT USED FOR UNKNOWN INDICATION
  3. ANTIBIOTICS [Concomitant]
  4. ANTIFUNGAL [Concomitant]

REACTIONS (2)
  - Nephrogenic diabetes insipidus [None]
  - Renal failure acute [None]
